FAERS Safety Report 9962230 (Version 1)
Quarter: 2014Q1

REPORT INFORMATION
  Report Type: Report from Study
  Country: US (occurrence: US)
  Receive Date: 20140305
  Receipt Date: 20140305
  Transmission Date: 20141002
  Serious: No
  Sender: FDA-Public Use
  Company Number: US-ABBVIE-13P-163-1116100-00

PATIENT
  Age: 51 Year
  Sex: Male

DRUGS (27)
  1. HUMIRA [Suspect]
     Indication: CROHN^S DISEASE
     Dates: start: 20130515, end: 20130515
  2. HUMIRA [Suspect]
     Dates: start: 20130529, end: 20130529
  3. HUMIRA [Suspect]
  4. LANTUS INSULIN [Concomitant]
     Indication: DIABETES MELLITUS
     Dosage: 20 UNITS DAILY
  5. LISINOPRIL [Concomitant]
     Indication: PRODUCT USED FOR UNKNOWN INDICATION
     Dosage: 10 MG DAILY
  6. TRILLPIX [Concomitant]
     Indication: BLOOD CHOLESTEROL
     Dosage: 135 MG DAILY
  7. ASPIRIN [Concomitant]
     Indication: PRODUCT USED FOR UNKNOWN INDICATION
     Dosage: 81 MG DAILY
  8. SYNTHROID [Concomitant]
     Indication: PRODUCT USED FOR UNKNOWN INDICATION
     Dosage: 225 MCG DAILY
  9. TRAZODONE [Concomitant]
     Indication: INSOMNIA
     Dosage: AT BEDTIME
  10. LYRICA [Concomitant]
     Indication: NEUROPATHY PERIPHERAL
  11. COREG [Concomitant]
     Indication: CARDIAC FAILURE CONGESTIVE
  12. POTASSIUM CHLORIDE [Concomitant]
     Indication: PRODUCT USED FOR UNKNOWN INDICATION
     Dosage: 10 MG EVERY DAY
  13. LASIX [Concomitant]
     Indication: PRODUCT USED FOR UNKNOWN INDICATION
  14. OMEPRAZOLE [Concomitant]
     Indication: PRODUCT USED FOR UNKNOWN INDICATION
     Dosage: 20 MG DAILY
  15. HUMULIN R [Concomitant]
     Indication: PRODUCT USED FOR UNKNOWN INDICATION
     Dosage: AS NEEDED
  16. PROMETHAZINE [Concomitant]
     Indication: NAUSEA
     Dosage: EVERY 4-6 HOURS AS NEEDED
  17. KLONOPIN [Concomitant]
     Indication: INSOMNIA
     Dosage: TAKE 1 OR 2 PILLS AT BEDTIME
  18. ADVAIR [Concomitant]
     Indication: PRODUCT USED FOR UNKNOWN INDICATION
     Dosage: 100/50
  19. ATROVENT [Concomitant]
     Indication: CHRONIC OBSTRUCTIVE PULMONARY DISEASE
  20. ROBINUL FORTE [Concomitant]
     Indication: ABDOMINAL PAIN UPPER
  21. ROBINUL FORTE [Concomitant]
     Indication: PAIN
  22. ROBINUL FORTE [Concomitant]
     Indication: DIARRHOEA
  23. FLINTSTONE VITAMINS [Concomitant]
     Indication: PRODUCT USED FOR UNKNOWN INDICATION
  24. FENTANYL PATCH [Concomitant]
     Indication: PAIN
  25. FENTANYL PATCH [Concomitant]
     Indication: NEUROPATHY PERIPHERAL
  26. FENTANYL PATCH [Concomitant]
     Indication: RHEUMATOID ARTHRITIS
  27. FENTANYL PATCH [Concomitant]
     Indication: CROHN^S DISEASE

REACTIONS (2)
  - Nervousness [Not Recovered/Not Resolved]
  - Nausea [Not Recovered/Not Resolved]
